FAERS Safety Report 15845777 (Version 5)
Quarter: 2019Q1

REPORT INFORMATION
  Report Type: Spontaneous
  Country: PT (occurrence: PT)
  Receive Date: 20190120
  Receipt Date: 20190305
  Transmission Date: 20190417
  Serious: Yes (Other)
  Sender: FDA-Public Use
  Company Number: PT-AUROBINDO-AUR-APL-2019-002297

PATIENT

DRUGS (2)
  1. AMOXICILLIN+CLAVULANIC ACID [Suspect]
     Active Substance: AMOXICILLIN\CLAVULANIC ACID
     Indication: NOSOCOMIAL INFECTION
     Dosage: UNK
     Route: 065
  2. AMOXICILLIN+CLAVULANIC ACID [Suspect]
     Active Substance: AMOXICILLIN\CLAVULANIC ACID
     Indication: ENTEROCOCCAL INFECTION

REACTIONS (8)
  - Rash pruritic [Recovering/Resolving]
  - Dermatitis bullous [Recovering/Resolving]
  - Skin reaction [Recovering/Resolving]
  - Type IV hypersensitivity reaction [Recovering/Resolving]
  - Generalised erythema [Recovering/Resolving]
  - Hypersensitivity [Recovering/Resolving]
  - Rash generalised [Recovering/Resolving]
  - Pemphigoid [Recovered/Resolved]
